FAERS Safety Report 7998637-6 (Version None)
Quarter: 2011Q4

REPORT INFORMATION
  Report Type: 
  Country: None (occurrence: None)
  Receive Date: 20111221
  Receipt Date: 20111214
  Transmission Date: 20120403
  Serious: No
  Sender: FDA-Public Use
  Company Number: US-B.I. PHARMACEUTICALS,INC./RIDGEFIELD-2011-BP-28079BP

PATIENT
  Sex: Female

DRUGS (1)
  1. ZANTAC 75 [Suspect]
     Dosage: 150 MG
     Route: 048
     Dates: start: 20111213

REACTIONS (5)
  - ADVERSE REACTION [None]
  - HEADACHE [None]
  - TOOTH INJURY [None]
  - FACE INJURY [None]
  - SINUS DISORDER [None]
